FAERS Safety Report 5509003-7 (Version None)
Quarter: 2007Q4

REPORT INFORMATION
  Report Type: 
  Country: None (occurrence: None)
  Receive Date: 20071031
  Receipt Date: 20070824
  Transmission Date: 20080405
  Serious: No
  Sender: FDA-Public Use
  Company Number: 2007PV033355

PATIENT
  Age: 51 Year
  Sex: Female

DRUGS (5)
  1. SYMLIN [Suspect]
     Indication: TYPE 2 DIABETES MELLITUS
     Dosage: 120 MCG;TID;SC   60 MCG;TID;SC  45 MCG;TID;SC  30 MCG;TID;SC
     Route: 058
     Dates: start: 20070701, end: 20070101
  2. SYMLIN [Suspect]
     Indication: TYPE 2 DIABETES MELLITUS
     Dosage: 120 MCG;TID;SC   60 MCG;TID;SC  45 MCG;TID;SC  30 MCG;TID;SC
     Route: 058
     Dates: start: 20070101, end: 20070801
  3. SYMLIN [Suspect]
     Indication: TYPE 2 DIABETES MELLITUS
     Dosage: 120 MCG;TID;SC   60 MCG;TID;SC  45 MCG;TID;SC  30 MCG;TID;SC
     Route: 058
     Dates: start: 20070801, end: 20070801
  4. SYMLIN [Suspect]
     Indication: TYPE 2 DIABETES MELLITUS
     Dosage: 120 MCG;TID;SC   60 MCG;TID;SC  45 MCG;TID;SC  30 MCG;TID;SC
     Route: 058
     Dates: start: 20070801
  5. BYETTA [Concomitant]

REACTIONS (3)
  - BLOOD GLUCOSE FLUCTUATION [None]
  - INJECTION SITE PAIN [None]
  - INJECTION SITE URTICARIA [None]
